FAERS Safety Report 13544597 (Version 1)
Quarter: 2017Q2

REPORT INFORMATION
  Report Type: Spontaneous
  Country: BE (occurrence: BE)
  Receive Date: 20170515
  Receipt Date: 20170515
  Transmission Date: 20170830
  Serious: Yes (Other)
  Sender: FDA-Public Use
  Company Number: BE-009507513-1703BEL007798

PATIENT
  Sex: Female

DRUGS (1)
  1. NUVARING [Suspect]
     Active Substance: ETHINYL ESTRADIOL\ETONOGESTREL
     Indication: CONTRACEPTION
     Dosage: ONE RING
     Route: 067
     Dates: start: 2012

REACTIONS (5)
  - Device difficult to use [Recovered/Resolved]
  - Implant site fibrosis [Not Recovered/Not Resolved]
  - Withdrawal bleed [Unknown]
  - Implant site fibrosis [Not Recovered/Not Resolved]
  - Device difficult to use [Recovered/Resolved]

NARRATIVE: CASE EVENT DATE: 20161031
